FAERS Safety Report 14376324 (Version 2)
Quarter: 2018Q1

REPORT INFORMATION
  Report Type: Report from Study
  Country: NL (occurrence: NL)
  Receive Date: 20180111
  Receipt Date: 20180205
  Transmission Date: 20180509
  Serious: Yes (Hospitalization, Other)
  Sender: FDA-Public Use
  Company Number: NL-IPSEN BIOPHARMACEUTICALS, INC.-2017-15588

PATIENT
  Age: 29 Year
  Sex: Male

DRUGS (5)
  1. SOMAVERT [Concomitant]
     Active Substance: PEGVISOMANT
  2. TESTOSTERON [Concomitant]
     Active Substance: TESTOSTERONE
  3. ALCOHOL. [Suspect]
     Active Substance: ALCOHOL
     Dates: start: 20171208
  4. LANREOTIDE [Suspect]
     Active Substance: LANREOTIDE
     Indication: ACROMEGALY
     Dosage: 120 MG
     Route: 058
     Dates: start: 20160708
  5. HYDROCORTISON [Concomitant]
     Active Substance: HYDROCORTISONE

REACTIONS (10)
  - Food craving [Not Recovered/Not Resolved]
  - Hepatitis E [Unknown]
  - Loss of consciousness [Unknown]
  - Asthenia [Not Recovered/Not Resolved]
  - Liver function test increased [Unknown]
  - Chills [Not Recovered/Not Resolved]
  - Hyperhidrosis [Not Recovered/Not Resolved]
  - Dizziness [Not Recovered/Not Resolved]
  - Blood glucose decreased [Not Recovered/Not Resolved]
  - Peripheral coldness [Not Recovered/Not Resolved]

NARRATIVE: CASE EVENT DATE: 20171101
